FAERS Safety Report 19410435 (Version 1)
Quarter: 2021Q2

REPORT INFORMATION
  Report Type: Spontaneous
  Country: US (occurrence: US)
  Receive Date: 20210612
  Receipt Date: 20210612
  Transmission Date: 20210717
  Serious: No
  Sender: FDA-Public Use
  Company Number: None

PATIENT
  Age: 66 Year
  Sex: Female
  Weight: 54 kg

DRUGS (1)
  1. RALOXIFENE 60 MG [Suspect]
     Active Substance: RALOXIFENE
     Indication: OSTEOPENIA
     Dosage: ?          QUANTITY:1 TABLET(S);?
     Route: 048
     Dates: start: 20210301, end: 20210526

REACTIONS (1)
  - Alopecia [None]

NARRATIVE: CASE EVENT DATE: 20210526
